FAERS Safety Report 25987641 (Version 1)
Quarter: 2025Q4

REPORT INFORMATION
  Report Type: Spontaneous
  Country: US (occurrence: US)
  Receive Date: 20251103
  Receipt Date: 20251103
  Transmission Date: 20260117
  Serious: No
  Sender: AMGEN
  Company Number: US-AMGEN-USASP2025213247

PATIENT
  Sex: Female

DRUGS (1)
  1. REPATHA [Suspect]
     Active Substance: EVOLOCUMAB
     Indication: Product used for unknown indication
     Dosage: UNK
     Route: 065

REACTIONS (8)
  - Dyspnoea [Unknown]
  - Swelling of nose [Unknown]
  - Pharyngeal swelling [Unknown]
  - Throat irritation [Unknown]
  - Lip pruritus [Unknown]
  - Nasal pruritus [Unknown]
  - Epistaxis [Unknown]
  - Lip swelling [Unknown]
